FAERS Safety Report 9465853 (Version 1)
Quarter: 2013Q3

REPORT INFORMATION
  Report Type: Spontaneous
  Country: TW (occurrence: TW)
  Receive Date: 20130820
  Receipt Date: 20130820
  Transmission Date: 20140515
  Serious: Yes (Death, Other)
  Sender: FDA-Public Use
  Company Number: TW-PFIZER INC-2013236233

PATIENT
  Age: 63 Year
  Sex: Female

DRUGS (1)
  1. SUTENT [Suspect]
     Indication: BREAST CANCER
     Dosage: 25 MG, 2X/DAY AFTER MEALS
     Dates: end: 20130117

REACTIONS (2)
  - Off label use [Unknown]
  - Multi-organ failure [Fatal]
